FAERS Safety Report 9717234 (Version 1)
Quarter: 2013Q4

REPORT INFORMATION
  Report Type: Spontaneous
  Country: CO (occurrence: CO)
  Receive Date: 20131127
  Receipt Date: 20131127
  Transmission Date: 20140711
  Serious: Yes (Hospitalization, Other)
  Sender: FDA-Public Use
  Company Number: CO-PFIZER INC-2013335664

PATIENT
  Age: 80 Year
  Sex: Female
  Weight: 60 kg

DRUGS (5)
  1. ZYVOXID [Suspect]
     Indication: INFECTION
     Dosage: 600 MG, EACH 12 HOURS (2X/DAY)
     Route: 042
     Dates: start: 20130829, end: 20130910
  2. MAXIPIME [Suspect]
     Indication: OSTEOMYELITIS
     Dosage: 2000 MG, EACH 6 HOURS (4X/DAY)
     Route: 042
     Dates: start: 20130807, end: 20131005
  3. MAXIPIME [Suspect]
     Indication: SPONDYLITIS
  4. VANCOMYCIN [Suspect]
     Indication: OSTEOMYELITIS
     Dosage: 500 MG, EACH 48 HOURS
     Route: 042
     Dates: start: 20130910, end: 20131007
  5. VANCOMYCIN [Suspect]
     Indication: SPONDYLITIS

REACTIONS (4)
  - Thrombocytopenia [Recovered/Resolved with Sequelae]
  - Renal failure acute [Recovered/Resolved with Sequelae]
  - Altered state of consciousness [Recovered/Resolved with Sequelae]
  - Overdose [Recovered/Resolved with Sequelae]
